FAERS Safety Report 4763857-0 (Version None)
Quarter: 2005Q3

REPORT INFORMATION
  Report Type: 
  Country: None (occurrence: None)
  Receive Date: 20050908
  Receipt Date: 20050301
  Transmission Date: 20060218
  Serious: Yes (Hospitalization, Congenital Anomaly, Other)
  Sender: FDA-Public Use
  Company Number: FR-ABBOTT-05P-056-0292353-00

PATIENT
  Sex: Female

DRUGS (9)
  1. NORVIR [Suspect]
     Indication: DRUG EXPOSURE DURING PREGNANCY
  2. KALETRA [Suspect]
     Indication: DRUG EXPOSURE DURING PREGNANCY
  3. ZIDOVUDINE [Suspect]
     Indication: DRUG EXPOSURE DURING PREGNANCY
  4. SAQUINAVIR [Suspect]
     Indication: DRUG EXPOSURE DURING PREGNANCY
  5. ZALCITABINE [Suspect]
     Indication: DRUG EXPOSURE DURING PREGNANCY
  6. NEVIRAPINE [Suspect]
     Indication: DRUG EXPOSURE DURING PREGNANCY
  7. LAMIVUDINE [Suspect]
     Indication: DRUG EXPOSURE DURING PREGNANCY
  8. TENOFOVIR DISOPROXIL FUMARATE [Suspect]
     Indication: DRUG EXPOSURE DURING PREGNANCY
  9. AMPRENAVIR [Suspect]
     Indication: DRUG EXPOSURE DURING PREGNANCY

REACTIONS (5)
  - DRUG EXPOSURE DURING PREGNANCY [None]
  - EYE MOVEMENT DISORDER [None]
  - LACRIMAL DISORDER [None]
  - NYSTAGMUS [None]
  - VISUAL TRACKING TEST ABNORMAL [None]
